FAERS Safety Report 11451060 (Version 1)
Quarter: 2015Q3

REPORT INFORMATION
  Report Type: Spontaneous
  Country: US (occurrence: US)
  Receive Date: 20150903
  Receipt Date: 20150903
  Transmission Date: 20151125
  Serious: No
  Sender: FDA-Public Use
  Company Number: US-ROCHE-1062629

PATIENT
  Sex: Male

DRUGS (2)
  1. PEGASYS [Suspect]
     Active Substance: PEGINTERFERON ALFA-2A
     Indication: CHRONIC HEPATITIS C
     Route: 058
     Dates: start: 20120406
  2. COPEGUS [Suspect]
     Active Substance: RIBAVIRIN
     Indication: CHRONIC HEPATITIS C
     Route: 048
     Dates: start: 20120406

REACTIONS (7)
  - Anxiety [Unknown]
  - Palpitations [Unknown]
  - Dyspnoea [Unknown]
  - Pain in extremity [Unknown]
  - Arthralgia [Unknown]
  - Dizziness [Unknown]
  - Muscle spasms [Unknown]
